FAERS Safety Report 25534609 (Version 3)
Quarter: 2025Q3

REPORT INFORMATION
  Report Type: Spontaneous
  Country: US (occurrence: US)
  Receive Date: 20250709
  Receipt Date: 20250926
  Transmission Date: 20251021
  Serious: No
  Sender: VIIV
  Company Number: US-GSKCCFUS-Case-02325726_AE-124398

PATIENT
  Sex: Male

DRUGS (2)
  1. RUKOBIA [Suspect]
     Active Substance: FOSTEMSAVIR TROMETHAMINE
     Indication: Product used for unknown indication
     Dosage: 1 DF, QD
  2. TIVICAY [Suspect]
     Active Substance: DOLUTEGRAVIR SODIUM
     Indication: Product used for unknown indication

REACTIONS (3)
  - Viral load increased [Unknown]
  - Off label use [Unknown]
  - Incorrect dose administered [Unknown]
